FAERS Safety Report 8386474-2 (Version None)
Quarter: 2012Q2

REPORT INFORMATION
  Report Type: 
  Country: None (occurrence: None)
  Receive Date: 20120525
  Receipt Date: 20120515
  Transmission Date: 20120825
  Serious: Yes (Other)
  Sender: FDA-Public Use
  Company Number: US-SANOFI-AVENTIS-2011SA031234

PATIENT
  Age: 77 Year
  Sex: Female
  Weight: 111.36 kg

DRUGS (7)
  1. CEFUROXIME [Suspect]
     Indication: URINARY TRACT INFECTION
     Route: 065
     Dates: start: 20120401
  2. MULTAQ [Suspect]
     Indication: ATRIAL FIBRILLATION
     Route: 048
     Dates: start: 20090119
  3. LOPRESSOR [Concomitant]
     Indication: HEART RATE
     Dates: start: 20080101
  4. WARFARIN SODIUM [Concomitant]
  5. CELEBREX [Concomitant]
  6. LOVASTATIN [Concomitant]
  7. SYNTHROID [Concomitant]

REACTIONS (10)
  - DIARRHOEA [None]
  - INCORRECT DOSE ADMINISTERED [None]
  - ATRIAL FIBRILLATION [None]
  - MUSCLE SPASMS [None]
  - WRONG DRUG ADMINISTERED [None]
  - PULMONARY HYPERTENSION [None]
  - URINARY TRACT INFECTION [None]
  - UPPER RESPIRATORY TRACT INFECTION [None]
  - MEDICATION RESIDUE [None]
  - HAEMATOCHEZIA [None]
